FAERS Safety Report 9248929 (Version 1)
Quarter: 2013Q2

REPORT INFORMATION
  Report Type: Spontaneous
  Country: IT (occurrence: IT)
  Receive Date: 20130423
  Receipt Date: 20130423
  Transmission Date: 20140414
  Serious: Yes (Hospitalization)
  Sender: FDA-Public Use
  Company Number: IT-TEVA-398321ISR

PATIENT
  Age: 35 Year
  Sex: Female

DRUGS (2)
  1. CITALOPRAM [Suspect]
     Dosage: 6 DOSAGE FORMS DAILY;
     Route: 048
     Dates: start: 20130301, end: 20130301
  2. PALIPERIDONE [Suspect]
     Dosage: 3 DOSAGE FORMS DAILY;
     Route: 048
     Dates: start: 20130301, end: 20130301

REACTIONS (2)
  - Drug abuse [Recovering/Resolving]
  - Electrocardiogram QT interval abnormal [Recovering/Resolving]
